FAERS Safety Report 15588903 (Version 4)
Quarter: 2019Q4

REPORT INFORMATION
  Report Type: Report from Study
  Country: US (occurrence: US)
  Receive Date: 20181106
  Receipt Date: 20191008
  Transmission Date: 20200122
  Serious: Yes (Other)
  Sender: FDA-Public Use
  Company Number: US-AMGEN-USASP2018153272

PATIENT
  Age: 60 Year
  Sex: Female

DRUGS (4)
  1. IODINE. [Concomitant]
     Active Substance: IODINE
     Dosage: UNK
  2. AIMOVIG [Suspect]
     Active Substance: ERENUMAB-AOOE
     Dosage: 140 MILLIGRAM, QMO
     Route: 065
     Dates: start: 201811
  3. AIMOVIG [Suspect]
     Active Substance: ERENUMAB-AOOE
     Dosage: 140 MILLIGRAM, QMO
     Route: 065
  4. AIMOVIG [Suspect]
     Active Substance: ERENUMAB-AOOE
     Indication: MIGRAINE PROPHYLAXIS
     Dosage: 70 MILLIGRAM, QMO
     Route: 065
     Dates: start: 20180908, end: 2018

REACTIONS (12)
  - Syncope [Unknown]
  - Vision blurred [Unknown]
  - Cold sweat [Unknown]
  - Fatigue [Unknown]
  - Rash pruritic [Not Recovered/Not Resolved]
  - Injection site pain [Unknown]
  - Night sweats [Unknown]
  - Wrong technique in product usage process [Unknown]
  - Exfoliative rash [Not Recovered/Not Resolved]
  - Irritability [Unknown]
  - Disorientation [Unknown]
  - Rash papular [Not Recovered/Not Resolved]

NARRATIVE: CASE EVENT DATE: 2018
